FAERS Safety Report 7019128-5 (Version None)
Quarter: 2010Q3

REPORT INFORMATION
  Report Type: 
  Country: None (occurrence: None)
  Receive Date: 20100928
  Receipt Date: 20100920
  Transmission Date: 20110219
  Serious: Yes (Life-Threatening, Hospitalization)
  Sender: FDA-Public Use
  Company Number: B0675883A

PATIENT
  Sex: Male
  Weight: 60 kg

DRUGS (4)
  1. AMOXICILLIN [Suspect]
     Indication: OSTEITIS
     Dosage: 12G PER DAY
     Route: 042
     Dates: start: 20100806, end: 20100902
  2. AMBISOME [Suspect]
     Indication: FUNGAL INFECTION
     Dosage: 600MG PER DAY
     Route: 042
     Dates: start: 20100726, end: 20100902
  3. VANCOMYCIN HCL [Suspect]
     Indication: OSTEITIS
     Dosage: 2G PER DAY
     Route: 042
     Dates: start: 20100806, end: 20100902
  4. RIFAMPICIN [Suspect]
     Indication: OSTEITIS
     Dosage: 1200MG PER DAY
     Route: 048
     Dates: start: 20100806, end: 20100902

REACTIONS (1)
  - NEUTROPENIA [None]
